FAERS Safety Report 15004946 (Version 1)
Quarter: 2018Q3

REPORT INFORMATION
  Report Type: Spontaneous
  Country: US (occurrence: US)
  Receive Date: 20180613
  Receipt Date: 20180613
  Transmission Date: 20181010
  Serious: No
  Sender: FDA-Public Use
  Company Number: US-COVIS PHARMA B.V.-2017COV00142

PATIENT
  Sex: Male

DRUGS (6)
  1. PRILOSEC [Suspect]
     Active Substance: OMEPRAZOLE MAGNESIUM
  2. MIRTAZAPINE. [Concomitant]
     Active Substance: MIRTAZAPINE
  3. PRILOSEC [Suspect]
     Active Substance: OMEPRAZOLE MAGNESIUM
     Route: 048
  4. PRILOSEC OTC [Suspect]
     Active Substance: OMEPRAZOLE MAGNESIUM
  5. ATIVAN [Concomitant]
     Active Substance: LORAZEPAM
  6. OMEPRAZOLE (UNKNOWN MANUFACTURER) [Suspect]
     Active Substance: OMEPRAZOLE
     Dosage: 1 CAPSULES, 2X/DAY
     Route: 048

REACTIONS (6)
  - Wrong technique in product usage process [None]
  - Insomnia [Unknown]
  - Productive cough [Unknown]
  - Product substitution issue [Unknown]
  - Drug ineffective [None]
  - Adjustment disorder [Unknown]
